FAERS Safety Report 5165263-6 (Version None)
Quarter: 2006Q4

REPORT INFORMATION
  Report Type: 
  Country: None (occurrence: None)
  Receive Date: 20061124
  Receipt Date: 20061114
  Transmission Date: 20070319
  Serious: Yes (Hospitalization)
  Sender: FDA-Public Use
  Company Number: 2006141477

PATIENT
  Age: 48 Year
  Sex: Female

DRUGS (1)
  1. ATORVASTATIN CALCIUM [Suspect]
     Dosage: 20 MG (1 IN 1 D) 6/7 YEARS

REACTIONS (2)
  - PERIPHERAL SENSORY NEUROPATHY [None]
  - QUADRIPARESIS [None]
